FAERS Safety Report 19053218 (Version 1)
Quarter: 2021Q1

REPORT INFORMATION
  Report Type: Other
  Country: AT (occurrence: AT)
  Receive Date: 20210325
  Receipt Date: 20210325
  Transmission Date: 20210420
  Serious: Yes (Other)
  Sender: FDA-Public Use
  Company Number: AT-CELLTRION INC.-2021AT003817

PATIENT

DRUGS (14)
  1. PACLITAXEL. [Suspect]
     Active Substance: PACLITAXEL
     Indication: BREAST CANCER
     Dosage: FREQUENCY: WEEKLY MOST RECENT DOSE PRIOR TO THE EVENT: 21/AUG/2019
     Route: 042
     Dates: start: 20190731, end: 20190814
  2. LOPERAMID [Concomitant]
     Active Substance: LOPERAMIDE
     Indication: DIARRHOEA
     Dosage: ONGOING = NOT CHECKED
     Dates: start: 20190821, end: 20191030
  3. THROMBO ASS [Concomitant]
     Active Substance: ASPIRIN
     Dosage: ONGOING = CHECKED
     Dates: start: 20170305
  4. FUROSEMID [FUROSEMIDE] [Concomitant]
     Active Substance: FUROSEMIDE
     Dosage: ONGOING = NOT CHECKED
     Dates: start: 20191211, end: 20200305
  5. LOVENOX [Concomitant]
     Active Substance: ENOXAPARIN SODIUM
     Dosage: ONGOING = NOT CHECKED
     Dates: start: 20191008, end: 20191218
  6. HYDROCHLOROTHIAZID [Concomitant]
     Active Substance: HYDROCHLOROTHIAZIDE
     Dosage: ONGOING = NOT CHECKED
     Dates: start: 20190711, end: 20200616
  7. RAMIPRIL. [Concomitant]
     Active Substance: RAMIPRIL
     Dosage: ONGOING = NOT CHECKED
     Dates: start: 20190711, end: 20200618
  8. THIAMAZOL [Concomitant]
     Active Substance: METHIMAZOLE
     Dosage: ONGOING = NOT CHECKED
     Dates: start: 20191211, end: 20200618
  9. ZOFRAN [Concomitant]
     Active Substance: ONDANSETRON HYDROCHLORIDE
     Dosage: ONGOING = CHECKED
     Dates: start: 20170726
  10. GALVUS [Concomitant]
     Active Substance: VILDAGLIPTIN
     Dosage: ONGOING = CHECKED
  11. PERTUZUMAB. [Suspect]
     Active Substance: PERTUZUMAB
     Indication: BREAST CANCER
     Dosage: 840 MG, FREQUENCY: OTHER MOST RECENT DOSE PRIOR TO THE EVENT: 07/AUG/2019
     Route: 042
     Dates: start: 20190731, end: 20190731
  12. TRASTUZUMAB (UNKNOWN) [Suspect]
     Active Substance: TRASTUZUMAB
     Indication: BREAST CANCER
     Dosage: 8 MG/M2, FREQUENCY: OTHER MOST RECENT DOSE PRIOR TO THE EVENT: 30/OCT/2019
     Route: 041
     Dates: start: 20190731, end: 20190731
  13. NOMEXOR [Concomitant]
     Active Substance: NEBIVOLOL HYDROCHLORIDE
     Dosage: ONGOING = CHECKED
     Dates: start: 20170305
  14. EPORATIO [Concomitant]
     Active Substance: ERYTHROPOIETIN
     Dosage: ONGOING = NOT CHECKED
     Dates: start: 20191002, end: 20191218

REACTIONS (1)
  - Polyneuropathy [Not Recovered/Not Resolved]

NARRATIVE: CASE EVENT DATE: 20191120
